FAERS Safety Report 21972734 (Version 2)
Quarter: 2023Q1

REPORT INFORMATION
  Report Type: Spontaneous
  Country: US (occurrence: US)
  Receive Date: 20230209
  Receipt Date: 20230221
  Transmission Date: 20230418
  Serious: No
  Sender: FDA-Public Use
  Company Number: US-PFIZER INC-PV202300025129

PATIENT

DRUGS (2)
  1. SOLU-MEDROL [Suspect]
     Active Substance: METHYLPREDNISOLONE SODIUM SUCCINATE
     Indication: Pseudomonas infection
     Dosage: UNK
  2. SEROSTIM [Concomitant]
     Active Substance: SOMATROPIN
     Indication: Breast cancer

REACTIONS (3)
  - Hepatic enzyme increased [Unknown]
  - Feeling abnormal [Unknown]
  - Renal disorder [Unknown]
